FAERS Safety Report 13102853 (Version 1)
Quarter: 2017Q1

REPORT INFORMATION
  Report Type: Spontaneous
  Country: GB (occurrence: GB)
  Receive Date: 20170110
  Receipt Date: 20170110
  Transmission Date: 20170428
  Serious: Yes (Other)
  Sender: FDA-Public Use
  Company Number: GB-MYLANLABS-2017M1000787

PATIENT

DRUGS (1)
  1. VENLAFAXINE [Suspect]
     Active Substance: VENLAFAXINE HYDROCHLORIDE
     Indication: ADJUSTMENT DISORDER WITH MIXED ANXIETY AND DEPRESSED MOOD
     Dosage: 300 MG, UNK
     Route: 048
     Dates: end: 20161217

REACTIONS (4)
  - Dizziness [Recovering/Resolving]
  - Crying [Recovering/Resolving]
  - Hyperhidrosis [Recovering/Resolving]
  - Paraesthesia [Recovering/Resolving]

NARRATIVE: CASE EVENT DATE: 20161217
